FAERS Safety Report 8084189-1 (Version None)
Quarter: 2012Q1

REPORT INFORMATION
  Report Type: 
  Country: None (occurrence: None)
  Receive Date: 20120128
  Receipt Date: 20110119
  Transmission Date: 20120608
  Serious: No
  Sender: FDA-Public Use
  Company Number: US-ABBOTT-11P-163-0699487-00

PATIENT
  Age: 35 Year
  Sex: Male

DRUGS (2)
  1. HUMIRA [Suspect]
     Indication: PSORIASIS
     Dates: start: 20100801, end: 20101101
  2. ALLEGRA-D 12 HOUR [Concomitant]
     Indication: HYPERSENSITIVITY

REACTIONS (2)
  - SINUSITIS [None]
  - PHARYNGITIS STREPTOCOCCAL [None]
